FAERS Safety Report 16681608 (Version 1)
Quarter: 2019Q3

REPORT INFORMATION
  Report Type: Spontaneous
  Country: US (occurrence: US)
  Receive Date: 20190807
  Receipt Date: 20190807
  Transmission Date: 20191004
  Serious: Yes (Hospitalization)
  Sender: FDA-Public Use
  Company Number: None

PATIENT
  Age: 19 Year
  Sex: Female
  Weight: 59.4 kg

DRUGS (1)
  1. FERRLECIT [Suspect]
     Active Substance: SODIUM FERRIC GLUCONATE COMPLEX
     Indication: IRON DEFICIENCY ANAEMIA
     Dosage: ?          OTHER FREQUENCY:ONCE A WEEK X 8;?
     Route: 041
     Dates: start: 20190730, end: 20190730

REACTIONS (8)
  - Pharyngeal swelling [None]
  - Dyspnoea [None]
  - Pregnancy [None]
  - Ocular hyperaemia [None]
  - Lacrimation increased [None]
  - Vomiting [None]
  - Abdominal pain [None]
  - Maternal exposure during pregnancy [None]

NARRATIVE: CASE EVENT DATE: 20190723
